FAERS Safety Report 9259288 (Version 2)
Quarter: 2013Q2

REPORT INFORMATION
  Report Type: Spontaneous
  Country: BE (occurrence: BE)
  Receive Date: 20130426
  Receipt Date: 20130426
  Transmission Date: 20140414
  Serious: Yes (Other)
  Sender: FDA-Public Use
  Company Number: BE-009507513-1303BEL008512

PATIENT
  Age: 71 Year
  Sex: Male
  Weight: 80 kg

DRUGS (5)
  1. ZOCOR 40 MG, COMPRIM?S PELLICUL?S [Suspect]
     Indication: HYPERCHOLESTEROLAEMIA
     Dosage: UNK, QD, IN THE EVENING
     Route: 048
     Dates: start: 2010, end: 2013
  2. ZOCOR 20 MG, COMPRIM?S PELLICUL?S [Suspect]
     Indication: HYPERCHOLESTEROLAEMIA
     Dosage: 20 MG, QD
     Route: 048
     Dates: start: 201304
  3. ASAFLOW [Concomitant]
     Indication: ANTICOAGULANT THERAPY
     Dosage: 80 MG, BID, IN THE MORNING AND IN THE EVENING
     Route: 048
  4. ISOTEN [Concomitant]
     Indication: BLOOD PRESSURE
     Dosage: 2.5 MG, QD, IN THE MORNING
     Route: 048
  5. TEMESTA [Concomitant]
     Indication: INSOMNIA
     Dosage: UNK

REACTIONS (6)
  - Musculoskeletal stiffness [Recovered/Resolved]
  - Pain in extremity [Recovered/Resolved]
  - Musculoskeletal pain [Recovered/Resolved]
  - Osteoarthritis [Unknown]
  - Infection [Recovered/Resolved]
  - Musculoskeletal stiffness [None]
